FAERS Safety Report 11552177 (Version 1)
Quarter: 2015Q3

REPORT INFORMATION
  Report Type: Other
  Country: IT (occurrence: IT)
  Receive Date: 20150925
  Receipt Date: 20150925
  Transmission Date: 20151125
  Serious: Yes (Hospitalization)
  Sender: FDA-Public Use
  Company Number: IT-SUN PHARMACEUTICAL INDUSTRIES LTD-2013SUN00730

PATIENT

DRUGS (3)
  1. OLANZAPINE 5 MG TABLETS [Suspect]
     Active Substance: OLANZAPINE
     Indication: SELF INJURIOUS BEHAVIOUR
     Dosage: 1 DF, UNK
     Route: 048
     Dates: start: 20130206, end: 20130206
  2. LORAZEPAM. [Suspect]
     Active Substance: LORAZEPAM
     Indication: SELF INJURIOUS BEHAVIOUR
     Dosage: 1 DF, UNK
     Route: 048
     Dates: start: 20130206, end: 20130206
  3. DEPAKINE CHRONO [Concomitant]
     Active Substance: VALPROATE SODIUM
     Dosage: 1 DF, UNK
     Route: 048
     Dates: start: 20130206, end: 20130206

REACTIONS (5)
  - Electrocardiogram change [Recovered/Resolved]
  - Myocardial necrosis marker increased [Recovered/Resolved]
  - Self injurious behaviour [Recovered/Resolved]
  - Somnolence [Recovered/Resolved]
  - Toxicity to various agents [Recovered/Resolved]

NARRATIVE: CASE EVENT DATE: 20130206
